FAERS Safety Report 24360467 (Version 1)
Quarter: 2024Q3

REPORT INFORMATION
  Report Type: Spontaneous
  Country: PH (occurrence: PH)
  Receive Date: 20240925
  Receipt Date: 20240925
  Transmission Date: 20241017
  Serious: Yes (Other)
  Sender: AMGEN
  Company Number: PH-AMGEN-PHLSP2024187296

PATIENT

DRUGS (1)
  1. XGEVA [Suspect]
     Active Substance: DENOSUMAB
     Indication: Bone giant cell tumour
     Dosage: UNK
     Route: 065

REACTIONS (9)
  - Paralysis [Unknown]
  - Bone giant cell tumour [Unknown]
  - Procedural haemorrhage [Unknown]
  - Wound dehiscence [Unknown]
  - Wound infection [Unknown]
  - Bone non-union [Unknown]
  - Device failure [Unknown]
  - Device related infection [Unknown]
  - Implant site irritation [Unknown]
